FAERS Safety Report 11445081 (Version 1)
Quarter: 2015Q3

REPORT INFORMATION
  Report Type: Report from Study
  Country: CA (occurrence: CA)
  Receive Date: 20150902
  Receipt Date: 20150902
  Transmission Date: 20151125
  Serious: Yes (Hospitalization)
  Sender: FDA-Public Use
  Company Number: CA-JNJFOC-20150820107

PATIENT
  Age: 26 Year
  Sex: Female
  Weight: 45.81 kg

DRUGS (11)
  1. SINGULAIR [Concomitant]
     Active Substance: MONTELUKAST SODIUM
     Route: 048
  2. FERAMAX [Concomitant]
     Active Substance: IRON\POLYSACCHARIDES
     Route: 048
  3. CELEBREX [Concomitant]
     Active Substance: CELECOXIB
     Route: 065
  4. ELAVIL [Concomitant]
     Active Substance: AMITRIPTYLINE HYDROCHLORIDE
     Route: 048
  5. MAXALT [Concomitant]
     Active Substance: RIZATRIPTAN BENZOATE
     Route: 065
  6. VITAMIN C [Concomitant]
     Active Substance: ASCORBIC ACID
     Route: 065
  7. REMICADE [Suspect]
     Active Substance: INFLIXIMAB
     Indication: CROHN^S DISEASE
     Route: 042
     Dates: start: 20100225
  8. CIPRO [Concomitant]
     Active Substance: CIPROFLOXACIN HYDROCHLORIDE
     Route: 065
  9. NEXIUM [Concomitant]
     Active Substance: ESOMEPRAZOLE MAGNESIUM
     Route: 065
  10. DILAUDID [Concomitant]
     Active Substance: HYDROMORPHONE HYDROCHLORIDE
     Dosage: TAKES 2 ML EVERY 3 TO 4 HOURS AS NEEDED
     Route: 058
  11. CALCIUM [Concomitant]
     Active Substance: CALCIUM
     Route: 065

REACTIONS (2)
  - Pyoderma gangrenosum [Not Recovered/Not Resolved]
  - Transfusion [Unknown]

NARRATIVE: CASE EVENT DATE: 20150821
